FAERS Safety Report 6086660-0 (Version None)
Quarter: 2009Q1

REPORT INFORMATION
  Report Type: 
  Country: None (occurrence: None)
  Receive Date: 20090217
  Receipt Date: 20090202
  Transmission Date: 20090719
  Serious: Yes (Death)
  Sender: FDA-Public Use
  Company Number: CHPA2009US02009

PATIENT
  Age: 33 Year
  Sex: Female

DRUGS (4)
  1. DIPHENHYDRAMINE HCL [Suspect]
     Dosage: ORAL
     Route: 048
  2. METHADONE HCL [Suspect]
  3. OXYCODONE HCL [Suspect]
  4. ETHANOL (ETHANOL) [Suspect]

REACTIONS (2)
  - CARDIAC ARREST [None]
  - RESPIRATORY ARREST [None]
